FAERS Safety Report 19181219 (Version 3)
Quarter: 2021Q2

REPORT INFORMATION
  Report Type: Spontaneous
  Country: RU (occurrence: RU)
  Receive Date: 20210426
  Receipt Date: 20210528
  Transmission Date: 20210717
  Serious: Yes (Hospitalization)
  Sender: FDA-Public Use
  Company Number: RU-SA-2021SA131919

PATIENT
  Age: 61 Year
  Sex: Female
  Weight: 170 kg

DRUGS (2)
  1. CYTOFLAVIN [Concomitant]
     Indication: HYPOXIC-ISCHAEMIC ENCEPHALOPATHY
     Dosage: 10 ML
     Route: 041
     Dates: start: 20210406, end: 20210410
  2. APIDRA [Suspect]
     Active Substance: INSULIN GLULISINE
     Indication: INSULIN-REQUIRING TYPE 2 DIABETES MELLITUS
     Dosage: 12 IU, TID
     Route: 058
     Dates: start: 20210406, end: 20210411

REACTIONS (3)
  - Drug ineffective [Recovered/Resolved]
  - Vomiting [Recovered/Resolved]
  - Myalgia [Recovered/Resolved]

NARRATIVE: CASE EVENT DATE: 20210406
